FAERS Safety Report 5139737-8 (Version None)
Quarter: 2006Q4

REPORT INFORMATION
  Report Type: 
  Country: None (occurrence: None)
  Receive Date: 20061024
  Receipt Date: 20061011
  Transmission Date: 20070319
  Serious: Yes (Hospitalization)
  Sender: FDA-Public Use
  Company Number: 148703ISR

PATIENT
  Age: 22 Year
  Sex: Male

DRUGS (2)
  1. ETOPOSIDE [Suspect]
     Indication: ACUTE PROMYELOCYTIC LEUKAEMIA
  2. CYCLOPHOSPHAMIDE [Concomitant]

REACTIONS (2)
  - MUCOEPIDERMOID CARCINOMA [None]
  - SALIVARY GLAND CANCER [None]
